FAERS Safety Report 15149877 (Version 3)
Quarter: 2019Q2

REPORT INFORMATION
  Report Type: Spontaneous
  Country: US (occurrence: US)
  Receive Date: 20180716
  Receipt Date: 20190401
  Transmission Date: 20190711
  Serious: No
  Sender: FDA-Public Use
  Company Number: US-VANDA PHARMACEUTICALS, INC-2018TASUS002335

PATIENT
  Age: 46 Year
  Sex: Female

DRUGS (3)
  1. HETLIOZ [Suspect]
     Active Substance: TASIMELTEON
     Dosage: 20 MG, QD
     Route: 048
     Dates: start: 20180625, end: 201807
  2. SPIRONOLACTONE. [Concomitant]
     Active Substance: SPIRONOLACTONE
     Indication: PRODUCT USED FOR UNKNOWN INDICATION
     Dosage: 100 MG, BID
  3. HETLIOZ [Suspect]
     Active Substance: TASIMELTEON
     Indication: NON-24-HOUR SLEEP-WAKE DISORDER
     Dosage: 20 MG, EVERY 24 HOURS AT BEDTIME
     Dates: start: 20180625, end: 201807

REACTIONS (7)
  - Muscle spasms [Recovering/Resolving]
  - Parasomnia [Unknown]
  - Nausea [Unknown]
  - Akathisia [Unknown]
  - Dyskinesia [Unknown]
  - Micturition urgency [Unknown]
  - Headache [Unknown]
